FAERS Safety Report 15772938 (Version 2)
Quarter: 2019Q1

REPORT INFORMATION
  Report Type: Spontaneous
  Country: JP (occurrence: JP)
  Receive Date: 20181228
  Receipt Date: 20190117
  Transmission Date: 20190417
  Serious: Yes (Death)
  Sender: FDA-Public Use
  Company Number: JP-OTSUKA-2018_037630

PATIENT
  Age: 50 Year
  Sex: Female

DRUGS (8)
  1. REXULTI [Suspect]
     Active Substance: BREXPIPRAZOLE
     Dosage: 1 MG, DAILY DOSE
     Route: 048
     Dates: end: 20180828
  2. REXULTI [Suspect]
     Active Substance: BREXPIPRAZOLE
     Indication: SCHIZOPHRENIA
     Dosage: 2 MG, DAILY DOSE
     Route: 048
     Dates: end: 20181109
  3. BROTIZOLAM [Concomitant]
     Active Substance: BROTIZOLAM
     Indication: IRRITABILITY
  4. REXULTI [Suspect]
     Active Substance: BREXPIPRAZOLE
     Indication: SCHIZOPHRENIA
     Dosage: 1 MG, DAILY DOSE
     Route: 048
     Dates: end: 20181114
  5. BROTIZOLAM [Concomitant]
     Active Substance: BROTIZOLAM
     Indication: INSOMNIA
     Dosage: 0.25 MG, DAILY DOSE (AS NEEDED)
     Route: 048
     Dates: end: 20181114
  6. ALPRAZOLAM. [Concomitant]
     Active Substance: ALPRAZOLAM
     Indication: PALPITATIONS
     Dosage: 0.4 MG, DAILY DOSE (AS NEEDED)
     Route: 048
     Dates: end: 20181114
  7. TOKISHAKUYAKUSAN [Concomitant]
     Active Substance: HERBALS
     Indication: PRODUCT USED FOR UNKNOWN INDICATION
     Dosage: 7.5 G, DAILY DOSE
     Route: 048
     Dates: end: 20181006
  8. TOKISHAKUYAKUSAN [Concomitant]
     Active Substance: HERBALS
     Dosage: 2.5 G, DAILY DOSE
     Route: 048
     Dates: end: 20181114

REACTIONS (6)
  - Micturition disorder [Unknown]
  - Completed suicide [Fatal]
  - Akathisia [Recovering/Resolving]
  - Initial insomnia [Unknown]
  - Palpitations [Unknown]
  - Decreased appetite [Unknown]

NARRATIVE: CASE EVENT DATE: 2018
